FAERS Safety Report 9868475 (Version 4)
Quarter: 2014Q1

REPORT INFORMATION
  Report Type: Spontaneous
  Country: BR (occurrence: BR)
  Receive Date: 20140204
  Receipt Date: 20140314
  Transmission Date: 20141002
  Serious: Yes (Death, Other)
  Sender: FDA-Public Use
  Company Number: BR-PFIZER INC-2013139718

PATIENT
  Sex: Female

DRUGS (7)
  1. SUTENT [Suspect]
     Indication: RENAL CANCER
     Dosage: ONE CAPSULE (50 MG), 1X/DAY
     Route: 048
     Dates: start: 20130409
  2. ARADOIS [Concomitant]
     Dosage: 100 MG, UNK
  3. HYDROCHLOROTHIAZIDE [Concomitant]
  4. TENSALIV S [Concomitant]
  5. METHADONE [Concomitant]
     Indication: PAIN
  6. PREDNISONE [Concomitant]
     Indication: ANTIEMETIC SUPPORTIVE CARE
  7. OMEPRAZOL [Concomitant]
     Indication: PROPHYLAXIS

REACTIONS (7)
  - Death [Fatal]
  - Feeding disorder [Unknown]
  - Mucosal inflammation [Unknown]
  - Tumour thrombosis [Not Recovered/Not Resolved]
  - Tongue discolouration [Unknown]
  - Infection [Unknown]
  - Asthenia [Not Recovered/Not Resolved]
